FAERS Safety Report 7922113-X (Version None)
Quarter: 2011Q4

REPORT INFORMATION
  Report Type: 
  Country: None (occurrence: None)
  Receive Date: 20111117
  Receipt Date: 20111114
  Transmission Date: 20120403
  Serious: Yes (Other)
  Sender: FDA-Public Use
  Company Number: FR-ABBOTT-11P-056-0867744-00

PATIENT
  Age: 62 Year
  Sex: Female

DRUGS (1)
  1. DEPAKENE [Suspect]
     Indication: CONVULSION
     Dosage: DAILY
     Route: 048
     Dates: start: 19860101

REACTIONS (2)
  - DRUG INEFFECTIVE [None]
  - CONVULSION [None]
